FAERS Safety Report 24126541 (Version 1)
Quarter: 2024Q3

REPORT INFORMATION
  Report Type: Spontaneous
  Country: CN (occurrence: CN)
  Receive Date: 20240723
  Receipt Date: 20240723
  Transmission Date: 20241016
  Serious: Yes (Other)
  Sender: NOVARTIS
  Company Number: CN-002147023-NVSC2024CN139684

PATIENT
  Age: 41 Year
  Sex: Male

DRUGS (1)
  1. COSENTYX [Suspect]
     Active Substance: SECUKINUMAB
     Indication: Psoriasis
     Dosage: 300 MG, QMO
     Route: 058
     Dates: start: 2021

REACTIONS (3)
  - Blood pressure increased [Unknown]
  - Heart rate increased [Unknown]
  - Palpitations [Unknown]

NARRATIVE: CASE EVENT DATE: 20220101
